FAERS Safety Report 25239619 (Version 1)
Quarter: 2025Q2

REPORT INFORMATION
  Report Type: Spontaneous
  Country: US (occurrence: None)
  Receive Date: 20250424
  Receipt Date: 20250424
  Transmission Date: 20250716
  Serious: No
  Sender: FDA-CTU
  Company Number: None

PATIENT
  Age: 62 Year
  Sex: Female
  Weight: 125.1 kg

DRUGS (1)
  1. RINVOQ [Suspect]
     Active Substance: UPADACITINIB
     Indication: Rheumatoid arthritis
     Dosage: FREQUENCY : DAILY;?
     Route: 048
     Dates: start: 20250321, end: 20250415

REACTIONS (7)
  - Somnolence [None]
  - Dizziness [None]
  - Nausea [None]
  - Abdominal pain [None]
  - Constipation [None]
  - Diarrhoea [None]
  - Cough [None]

NARRATIVE: CASE EVENT DATE: 20250424
